FAERS Safety Report 9280209 (Version 1)
Quarter: 2012Q4

REPORT INFORMATION
  Report Type: Spontaneous
  Country: US (occurrence: None)
  Receive Date: 20120919
  Receipt Date: 20120919
  Transmission Date: 20130627
  Serious: Yes (Hospitalization, Other)
  Sender: FDA-Public Use
  Company Number: 2011MA015553

PATIENT
  Sex: Female
  Weight: 80.29 kg

DRUGS (12)
  1. METOCLOPRAMIDE TABLETS USP, 10 MG (PUREPAC) [Suspect]
     Indication: ACID REFLUX
     Dosage: q 12 HR
     Dates: start: 20090606, end: 20090606
  2. ASACOL [Concomitant]
  3. BACTRIM [Concomitant]
  4. BUSPIRONE [Concomitant]
  5. CITALOPRAM [Concomitant]
  6. FLAGYL [Concomitant]
  7. ONDANSETRON [Concomitant]
  8. OXYCODONE W/APAP [Concomitant]
  9. PREMARIN [Concomitant]
  10. SEROQUEL [Concomitant]
  11. TRAZADONE [Concomitant]
  12. ZOLPIDEM [Concomitant]

REACTIONS (20)
  - Dystonia [None]
  - Economic problem [None]
  - Injury [None]
  - Emotional disorder [None]
  - Depression [None]
  - Anxiety [None]
  - Gastrooesophageal reflux disease [None]
  - Spinal osteoarthritis [None]
  - Insomnia [None]
  - Back pain [None]
  - Post-traumatic stress disorder [None]
  - Musculoskeletal pain [None]
  - Hyponatraemia [None]
  - Hypokalaemia [None]
  - Ileus [None]
  - Wound infection [None]
  - Urinary tract infection [None]
  - Tardive dyskinesia [None]
  - Colitis [None]
  - Dyskinesia [None]
